FAERS Safety Report 9004773 (Version 1)
Quarter: 2012Q4

REPORT INFORMATION
  Report Type: Spontaneous
  Country: IT (occurrence: None)
  Receive Date: 20121227
  Receipt Date: 20121227
  Transmission Date: 20130627
  Serious: Yes (Hospitalization)
  Sender: FDA-Public Use
  Company Number: 2012-22472

PATIENT
  Age: 32 Year
  Sex: Female

DRUGS (4)
  1. CHLORPROMAZINE HYDROCHLORIDE [Suspect]
     Indication: BIPOLAR II DISORDER
     Route: 048
     Dates: start: 20121128, end: 20121128
  2. BUPROPION HYDROCHLORIDE [Suspect]
     Indication: BIPOLAR II DISORDER
     Route: 048
     Dates: start: 20121128, end: 20121128
  3. ALPRAZOLAM [Suspect]
     Indication: BIPOLAR II DISORDER
     Route: 048
     Dates: start: 20121128, end: 20121128
  4. LAMOTRIGINE [Suspect]
     Indication: BIPOLAR II DISORDER
     Route: 048
     Dates: start: 20121128, end: 20121128

REACTIONS (3)
  - Psychomotor skills impaired [None]
  - Intentional drug misuse [None]
  - Overdose [None]
